FAERS Safety Report 7274524-6 (Version None)
Quarter: 2011Q1

REPORT INFORMATION
  Report Type: 
  Country: None (occurrence: None)
  Receive Date: 20110204
  Receipt Date: 20110127
  Transmission Date: 20110831
  Serious: Yes (Hospitalization)
  Sender: FDA-Public Use
  Company Number: JP-JNJFOC-20110105082

PATIENT
  Sex: Female
  Weight: 63 kg

DRUGS (11)
  1. HALCION [Suspect]
     Indication: SLEEP DISORDER
     Route: 048
  2. RISPERDAL CONSTA [Suspect]
     Route: 030
  3. ABILIFY [Suspect]
     Indication: SCHIZOPHRENIA
     Route: 048
  4. ABILIFY [Suspect]
     Route: 048
  5. RISPERDAL CONSTA [Suspect]
     Route: 030
  6. BENZALIN [Suspect]
     Indication: SLEEP DISORDER
     Route: 048
  7. MUCOSTA [Suspect]
     Indication: GASTRITIS
     Route: 048
  8. ABILIFY [Suspect]
     Route: 048
  9. RISPERDAL CONSTA [Suspect]
     Indication: SCHIZOPHRENIA
     Route: 030
  10. ABILIFY [Suspect]
     Route: 048
  11. MUCOSTA [Suspect]
     Route: 048

REACTIONS (7)
  - PULMONARY VENOUS THROMBOSIS [None]
  - DEEP VEIN THROMBOSIS [None]
  - HYPOAESTHESIA ORAL [None]
  - HYPOAESTHESIA [None]
  - LOSS OF CONSCIOUSNESS [None]
  - FALL [None]
  - GALACTORRHOEA [None]
